FAERS Safety Report 17905462 (Version 1)
Quarter: 2020Q2

REPORT INFORMATION
  Report Type: Spontaneous
  Country: US (occurrence: US)
  Receive Date: 20200616
  Receipt Date: 20200616
  Transmission Date: 20200714
  Serious: No
  Sender: FDA-Public Use
  Company Number: US-ROCHE-2329673

PATIENT
  Age: 85 Year
  Sex: Female
  Weight: 71.73 kg

DRUGS (2)
  1. ACTEMRA [Suspect]
     Active Substance: TOCILIZUMAB
     Indication: TEMPORAL ARTERITIS
     Dosage: PRE-FILLED SYRINGES ;ONGOING: YES
     Route: 058
     Dates: start: 20190301
  2. DEXAMETHASONE. [Concomitant]
     Active Substance: DEXAMETHASONE
     Indication: TEMPORAL ARTERITIS
     Dosage: STEROID WEAN ;ONGOING: YES
     Route: 065
     Dates: start: 20181101

REACTIONS (1)
  - Diarrhoea [Not Recovered/Not Resolved]

NARRATIVE: CASE EVENT DATE: 201903
